FAERS Safety Report 9688175 (Version 3)
Quarter: 2013Q4

REPORT INFORMATION
  Report Type: Spontaneous
  Country: SE (occurrence: SE)
  Receive Date: 20131114
  Receipt Date: 20131129
  Transmission Date: 20140711
  Serious: Yes (Other)
  Sender: FDA-Public Use
  Company Number: SE-JNJFOC-20131105011

PATIENT
  Age: 33 Year
  Sex: Female
  Weight: 53 kg

DRUGS (4)
  1. REMICADE [Suspect]
     Indication: COLITIS ULCERATIVE
     Route: 042
     Dates: start: 20090310, end: 20131008
  2. AZATHIOPRIN [Suspect]
     Indication: COLITIS ULCERATIVE
     Route: 065
     Dates: start: 20071206, end: 20100610
  3. ASACOL [Concomitant]
     Indication: COLITIS ULCERATIVE
     Route: 065
     Dates: start: 20040211
  4. VALTREX [Concomitant]
     Indication: HERPES SIMPLEX
     Dosage: AS NECESSARY
     Route: 065

REACTIONS (2)
  - Cervix carcinoma stage 0 [Unknown]
  - Herpes simplex [Unknown]
